FAERS Safety Report 15683102 (Version 3)
Quarter: 2019Q1

REPORT INFORMATION
  Report Type: Spontaneous
  Country: JP (occurrence: JP)
  Receive Date: 20181204
  Receipt Date: 20190130
  Transmission Date: 20190417
  Serious: Yes (Life-Threatening, Hospitalization, Other)
  Sender: FDA-Public Use
  Company Number: JP-ROCHE-2222017

PATIENT
  Age: 79 Year
  Sex: Male
  Weight: 66 kg

DRUGS (10)
  1. LANSOPRAZOLE. [Concomitant]
     Active Substance: LANSOPRAZOLE
     Dosage: DOSAGE IS UNCERTAIN.
     Route: 065
  2. FUROSEMIDE. [Concomitant]
     Active Substance: FUROSEMIDE
     Dosage: DOSAGE IS UNCERTAIN.
     Route: 065
  3. XELODA [Suspect]
     Active Substance: CAPECITABINE
     Indication: COLON CANCER
     Dosage: MOST RECENT DOSE: 14/NOV/2018
     Route: 048
     Dates: start: 20181101
  4. LIXIANA [Concomitant]
     Active Substance: EDOXABAN TOSYLATE
     Dosage: DOSAGE IS UNCERTAIN.
     Route: 065
  5. AVOLVE [Concomitant]
     Active Substance: DUTASTERIDE
     Dosage: DOSAGE IS UNCERTAIN.
     Route: 065
  6. MIYA-BM [Concomitant]
     Active Substance: CLOSTRIDIUM BUTYRICUM SPORES STRAIN M-55
     Dosage: DOSAGE IS UNCERTAIN.
     Route: 065
  7. AMLODIPINE [Concomitant]
     Active Substance: AMLODIPINE BESYLATE
     Dosage: DOSAGE IS UNCERTAIN.
     Route: 065
  8. BETANIS [Concomitant]
     Active Substance: MIRABEGRON
     Dosage: DOSAGE IS UNCERTAIN.
     Route: 065
  9. MAGNESIUM OXIDE. [Concomitant]
     Active Substance: MAGNESIUM OXIDE
     Dosage: DOSAGE IS UNCERTAIN.
     Route: 065
  10. NAFTOPIDIL [Concomitant]
     Active Substance: NAFTOPIDIL
     Dosage: DOSAGE IS UNCERTAIN.
     Route: 065

REACTIONS (8)
  - Encephalopathy [Recovering/Resolving]
  - Depressed level of consciousness [Recovering/Resolving]
  - Splenorenal shunt [Unknown]
  - Stomatitis [Recovered/Resolved]
  - Diarrhoea [Unknown]
  - Palmar-plantar erythrodysaesthesia syndrome [Recovering/Resolving]
  - Hyperammonaemia [Unknown]
  - Oedema peripheral [Unknown]

NARRATIVE: CASE EVENT DATE: 20181113
